FAERS Safety Report 6548811-0 (Version None)
Quarter: 2010Q1

REPORT INFORMATION
  Report Type: 
  Country: None (occurrence: None)
  Receive Date: 20100124
  Receipt Date: 20091130
  Transmission Date: 20100710
  Serious: No
  Sender: FDA-Public Use
  Company Number: US-ALLERGAN-0916481US

PATIENT
  Sex: Male

DRUGS (4)
  1. RESTASIS [Suspect]
     Indication: DRY EYE
     Dosage: UNK
     Route: 047
  2. CRESTOR [Concomitant]
  3. EYE DROPS [Concomitant]
  4. VITAMINS [Concomitant]

REACTIONS (2)
  - EYE PAIN [None]
  - OCULAR HYPERAEMIA [None]
